FAERS Safety Report 6326287-6 (Version None)
Quarter: 2009Q3

REPORT INFORMATION
  Report Type: 
  Country: None (occurrence: None)
  Receive Date: 20090821
  Receipt Date: 20090807
  Transmission Date: 20100115
  Serious: Yes (Hospitalization)
  Sender: FDA-Public Use
  Company Number: 2009AL003557

PATIENT
  Age: 59 Year
  Sex: Male

DRUGS (15)
  1. DIGOXIN [Suspect]
     Dosage: 0.25MG, DAILY, HALF TAB
     Dates: start: 20070522
  2. POTASSIUM CHLORIDE [Concomitant]
  3. QUINIDINE HCL [Concomitant]
  4. MEXITIL [Concomitant]
  5. LISINOPRIL [Concomitant]
  6. LASIX [Concomitant]
  7. XANAX [Concomitant]
  8. AMIODARONE [Concomitant]
  9. ASPIRIN [Concomitant]
  10. SURFAK [Concomitant]
  11. ALDACTONE [Concomitant]
  12. PRINIVIL [Concomitant]
  13. K-DUR [Concomitant]
  14. COREG [Concomitant]
  15. ZINACEF [Concomitant]

REACTIONS (9)
  - CARDIAC FAILURE [None]
  - CARDIOACTIVE DRUG LEVEL INCREASED [None]
  - CONDITION AGGRAVATED [None]
  - ECONOMIC PROBLEM [None]
  - MITRAL VALVE INCOMPETENCE [None]
  - MULTIPLE INJURIES [None]
  - SURGERY [None]
  - TRICUSPID VALVE INCOMPETENCE [None]
  - UNEVALUABLE EVENT [None]
